FAERS Safety Report 11182729 (Version 2)
Quarter: 2015Q3

REPORT INFORMATION
  Report Type: Spontaneous
  Country: FR (occurrence: FR)
  Receive Date: 20150611
  Receipt Date: 20150708
  Transmission Date: 20151125
  Serious: Yes (Other)
  Sender: FDA-Public Use
  Company Number: FR-PFIZER INC-2015190111

PATIENT
  Age: 13 Day
  Sex: Male

DRUGS (1)
  1. ALPROSTADIL INTSEL CHIMOS [Suspect]
     Active Substance: ALPROSTADIL
     Dosage: 0.006 ?G/KG/MIN
     Route: 042
     Dates: start: 20150129, end: 20150131

REACTIONS (2)
  - Skin necrosis [Recovered/Resolved with Sequelae]
  - Infusion site extravasation [Recovered/Resolved]

NARRATIVE: CASE EVENT DATE: 20150131
